FAERS Safety Report 16062323 (Version 3)
Quarter: 2019Q4

REPORT INFORMATION
  Report Type: Other
  Country: CA (occurrence: CA)
  Receive Date: 20190312
  Receipt Date: 20191028
  Transmission Date: 20200122
  Serious: Yes (Death, Hospitalization, Other)
  Sender: FDA-Public Use
  Company Number: CA-PFIZER INC-2019105033

PATIENT
  Age: 39 Year
  Sex: Female

DRUGS (6)
  1. METHYLPREDNISOLONE SODIUM SUCCINATE. [Suspect]
     Active Substance: METHYLPREDNISOLONE SODIUM SUCCINATE
     Indication: PROPHYLAXIS AGAINST TRANSPLANT REJECTION
     Dosage: 2 MG/KG 1 EVERY 1 DAY
     Route: 042
  2. CICLOSPORIN [Suspect]
     Active Substance: CYCLOSPORINE
     Indication: ACUTE LYMPHOCYTIC LEUKAEMIA
  3. MYCOPHENOLATE MOFETIL. [Suspect]
     Active Substance: MYCOPHENOLATE MOFETIL
     Indication: ACUTE LYMPHOCYTIC LEUKAEMIA
  4. CICLOSPORIN [Suspect]
     Active Substance: CYCLOSPORINE
     Indication: PROPHYLAXIS AGAINST TRANSPLANT REJECTION
     Route: 065
  5. ALEMTUZUMAB [Suspect]
     Active Substance: ALEMTUZUMAB
     Route: 042
  6. MYCOPHENOLATE MOFETIL. [Suspect]
     Active Substance: MYCOPHENOLATE MOFETIL
     Indication: PROPHYLAXIS AGAINST TRANSPLANT REJECTION
     Dosage: UNK
     Route: 065

REACTIONS (15)
  - H3N2 influenza [Fatal]
  - Graft versus host disease in gastrointestinal tract [Fatal]
  - Viral mutation identified [Fatal]
  - Legionella infection [Fatal]
  - Pathogen resistance [Fatal]
  - Productive cough [Fatal]
  - Drug ineffective [Fatal]
  - Influenza [Fatal]
  - Cystitis haemorrhagic [Fatal]
  - Dyspnoea [Fatal]
  - Cytomegalovirus infection [Fatal]
  - Graft versus host disease in skin [Fatal]
  - Pseudomonas infection [Fatal]
  - Respiratory depression [Fatal]
  - Respiratory disorder [Fatal]

NARRATIVE: CASE EVENT DATE: 201211
